FAERS Safety Report 17066349 (Version 1)
Quarter: 2019Q4

REPORT INFORMATION
  Report Type: Spontaneous
  Country: US (occurrence: US)
  Receive Date: 20191122
  Receipt Date: 20191122
  Transmission Date: 20200122
  Serious: No
  Sender: FDA-Public Use
  Company Number: US-PERRIGO-19US005776

PATIENT
  Sex: Female
  Weight: 116.1 kg

DRUGS (3)
  1. POLYETHYLENE GLYCOL 3350. [Suspect]
     Active Substance: POLYETHYLENE GLYCOL 3350
     Dosage: UNKNOWN, SINGLE
     Route: 048
     Dates: start: 20190508, end: 20190508
  2. POLYETHYLENE GLYCOL 3350. [Suspect]
     Active Substance: POLYETHYLENE GLYCOL 3350
     Indication: GASTROINTESTINAL MOTILITY DISORDER
     Dosage: UNKNOWN, QD
     Route: 048
     Dates: end: 20190502
  3. GAMMA GLOBULIN [Suspect]
     Active Substance: IMMUNE GLOBULIN NOS
     Indication: HYPOGAMMAGLOBULINAEMIA
     Dosage: UNKNOWN
     Route: 065

REACTIONS (4)
  - Skin discolouration [Recovering/Resolving]
  - Contraindicated product administered [Recovered/Resolved]
  - Incorrect product administration duration [Recovered/Resolved]
  - Off label use [Recovered/Resolved]
